FAERS Safety Report 15208787 (Version 3)
Quarter: 2018Q3

REPORT INFORMATION
  Report Type: Report from Study
  Country: GR (occurrence: GR)
  Receive Date: 20180727
  Receipt Date: 20180906
  Transmission Date: 20181010
  Serious: Yes (Death, Hospitalization, Other)
  Sender: FDA-Public Use
  Company Number: GR-PFIZER INC-2018302600

PATIENT
  Age: 60 Year
  Sex: Female
  Weight: 54 kg

DRUGS (24)
  1. VELCADE [Suspect]
     Active Substance: BORTEZOMIB
     Dosage: 2 MG, UNK,INJECTION; ON DAYS 1, 8, 15 WITH 1 WEEK OFF EVERY 28 DAY CYCLE
     Route: 058
     Dates: start: 20170310, end: 20170413
  2. CYCLOPHOSPHAMIDE. [Suspect]
     Active Substance: CYCLOPHOSPHAMIDE
     Dosage: 500 MG, UNK, ON DAYS 1, 2, 3 AND 4
     Route: 042
     Dates: start: 20170724, end: 20171212
  3. CYCLOPHOSPHAMIDE. [Suspect]
     Active Substance: CYCLOPHOSPHAMIDE
     Indication: PLASMA CELL MYELOMA
     Dosage: 500 MG, UNK, ON DAYS 1, 2, 3, AND 4
     Route: 042
     Dates: start: 20160604, end: 20170108
  4. ADRIBLASTINA [Suspect]
     Active Substance: DOXORUBICIN HYDROCHLORIDE
     Indication: PLASMA CELL MYELOMA
     Dosage: 15 MG, ON DAYS 1, 2, 3, AND 4
     Route: 042
     Dates: start: 20160604
  5. DEXAMETHASONE. [Suspect]
     Active Substance: DEXAMETHASONE
     Dosage: 40 MG, UNK, ON DAYS 1, 2, 3, AND 4
     Route: 048
     Dates: start: 20160604, end: 20170108
  6. VELCADE [Suspect]
     Active Substance: BORTEZOMIB
     Dosage: 2 MG, UNK, INJECTION; ON DAYS 1, 8, 15 WITH 1 WEEK OFF EVERY 28 DAY CYCLE
     Route: 058
     Dates: start: 20170519, end: 20170627
  7. ASPIRIN /00002701/ [Concomitant]
     Active Substance: ASPIRIN
     Dosage: UNK
  8. DEXAMETHASONE. [Suspect]
     Active Substance: DEXAMETHASONE
     Dosage: 32 MG, UNK, ON DAYS 1, 2, 3, AND 4
     Route: 048
     Dates: start: 20170310, end: 20170627
  9. VELCADE [Suspect]
     Active Substance: BORTEZOMIB
     Dosage: 2 MG, UNK, INJECTION; ON DAYS 1, 8, 15 WITH 1 WEEK OFF EVERY 28 DAY CYCLE
     Route: 058
     Dates: start: 20160604, end: 20170108
  10. THALIDOMIDE [Suspect]
     Active Substance: THALIDOMIDE
     Indication: PLASMA CELL MYELOMA
     Dosage: 100 MG, UNK, 21 DAYS ON AND 7 DAYS OFF
     Route: 048
     Dates: start: 20160604
  11. ZOLEDRONIC ACID [Concomitant]
     Active Substance: ZOLEDRONIC ACID
     Dosage: UNK
  12. LENALIDOMIDE [Suspect]
     Active Substance: LENALIDOMIDE
     Indication: PLASMA CELL MYELOMA
     Dosage: 25 MG, UNK
     Route: 048
     Dates: start: 20170403
  13. POMALIDOMIDE [Suspect]
     Active Substance: POMALIDOMIDE
     Indication: PLASMA CELL MYELOMA
     Dosage: 4 MG, UNK
     Route: 048
     Dates: start: 20170724, end: 20171212
  14. EPOETIN [Concomitant]
     Active Substance: ERYTHROPOIETIN
     Dosage: UNK
  15. CARBOPLATIN. [Suspect]
     Active Substance: CARBOPLATIN
     Indication: PLASMA CELL MYELOMA
     Dosage: 30 MG, ON DAYS 1, 2, 3 AND 4
     Route: 042
     Dates: start: 20160604
  16. DARATUMUMAB [Suspect]
     Active Substance: DARATUMUMAB
     Indication: PLASMA CELL MYELOMA
     Dosage: 16 MG/KG, UNK
     Route: 042
     Dates: start: 20180122, end: 20180306
  17. DEXAMETHASONE. [Suspect]
     Active Substance: DEXAMETHASONE
     Indication: PLASMA CELL MYELOMA
     Dosage: 20 MG, UNK
     Route: 042
     Dates: start: 20180122, end: 20180307
  18. DEXAMETHASONE. [Suspect]
     Active Substance: DEXAMETHASONE
     Dosage: 20 MG, UNK, ON DAYS 1,2, 3 AND 4
     Route: 048
     Dates: start: 20170724, end: 20180111
  19. VELCADE [Suspect]
     Active Substance: BORTEZOMIB
     Indication: PLASMA CELL MYELOMA
     Dosage: 1.5 MG, UNK, INJECTION; ON DAYS 1, 8, 15 WITH 1 WEEK OFF EVERY 28 DAY CYCLE
     Route: 058
     Dates: start: 20180122, end: 20180220
  20. ETOPOSIDE. [Suspect]
     Active Substance: ETOPOSIDE
     Indication: PLASMA CELL MYELOMA
     Dosage: 50 MG, UNK, ON DAYS 1,2, 3 AND 4
     Route: 048
     Dates: start: 20160604
  21. FILGRASTIM [Concomitant]
     Active Substance: FILGRASTIM
     Dosage: UNK
  22. LENALIDOMIDE [Suspect]
     Active Substance: LENALIDOMIDE
     Dosage: 25 MG, UNK
     Route: 048
     Dates: start: 20170310, end: 20170316
  23. VELCADE [Suspect]
     Active Substance: BORTEZOMIB
     Dosage: 4.2 MG, WEEKLY, ON DAYS 1,4,8 AND 11 WITH ONE WEEK OFF, INJECTION; ON DAYS 1, 8, 15 WITH 1 WEEK OFF
     Route: 058
     Dates: start: 20170724, end: 20180111
  24. HEPARIN [Concomitant]
     Active Substance: HEPARIN SODIUM
     Dosage: UNK

REACTIONS (9)
  - Urinary tract infection bacterial [Recovered/Resolved]
  - Thrombocytopenia [Recovered/Resolved]
  - Viral infection [Recovered/Resolved]
  - Acute kidney injury [Fatal]
  - Pancytopenia [Not Recovered/Not Resolved]
  - Urinary tract infection [Recovered/Resolved]
  - Respiratory tract infection [Recovered/Resolved]
  - Sinus tachycardia [Not Recovered/Not Resolved]
  - Febrile neutropenia [Recovered/Resolved]

NARRATIVE: CASE EVENT DATE: 20170113
